FAERS Safety Report 24112879 (Version 5)
Quarter: 2024Q4

REPORT INFORMATION
  Report Type: Report from Study
  Country: US (occurrence: US)
  Receive Date: 20240719
  Receipt Date: 20241108
  Transmission Date: 20250115
  Serious: Yes (Death)
  Sender: OTSUKA
  Company Number: US-OTSUKA-2024_020149

PATIENT
  Sex: Female

DRUGS (1)
  1. DEXTROMETHORPHAN HYDROBROMIDE\QUINIDINE SULFATE [Suspect]
     Active Substance: DEXTROMETHORPHAN HYDROBROMIDE\QUINIDINE SULFATE
     Indication: Product used for unknown indication
     Dosage: UNK (20-10MG), BID
     Route: 065
     Dates: start: 20230719, end: 20231107

REACTIONS (2)
  - Dementia Alzheimer^s type [Fatal]
  - Drug ineffective [Unknown]
